FAERS Safety Report 8226071-2 (Version None)
Quarter: 2012Q1

REPORT INFORMATION
  Report Type: 
  Country: None (occurrence: None)
  Receive Date: 20120319
  Receipt Date: 20120302
  Transmission Date: 20120608
  Serious: Yes (Life-Threatening, Hospitalization)
  Sender: FDA-Public Use
  Company Number: 216951

PATIENT
  Age: 66 Year
  Sex: Male

DRUGS (5)
  1. SUTENT [Suspect]
     Indication: RENAL CANCER
     Dosage: ORAL
     Route: 048
     Dates: end: 20111209
  2. PROCOLARAN (IVABRADINE HYDROCHLORIDE) [Suspect]
     Indication: ISCHAEMIC CARDIOMYOPATHY
     Dosage: ORAL
     Route: 048
     Dates: end: 20111209
  3. NEXIUM [Suspect]
     Indication: PRODUCT USED FOR UNKNOWN INDICATION
     Dosage: ORAL
     Route: 048
     Dates: end: 20111201
  4. INNOHEP [Suspect]
     Indication: PRODUCT USED FOR UNKNOWN INDICATION
     Dosage: SUBCUTANEOUS
     Route: 058
     Dates: end: 20111209
  5. AMARYL [Suspect]
     Indication: PRODUCT USED FOR UNKNOWN INDICATION
     Dosage: ORAL
     Dates: end: 20111201

REACTIONS (1)
  - ISCHAEMIC STROKE [None]
